FAERS Safety Report 20920427 (Version 1)
Quarter: 2022Q2

REPORT INFORMATION
  Report Type: Spontaneous
  Country: US (occurrence: None)
  Receive Date: 20220606
  Receipt Date: 20220606
  Transmission Date: 20220721
  Serious: No
  Sender: FDA-Public Use
  Company Number: None

PATIENT
  Sex: Female

DRUGS (4)
  1. VERZENIO [Suspect]
     Active Substance: ABEMACICLIB
     Indication: Breast cancer female
     Dosage: TAKE 1 TABLET (150 MG TOTAL) BY MOUTH 2 TIMES DAILY.?
     Route: 048
     Dates: start: 20210129
  2. ACYCLOVIR TAB [Concomitant]
  3. ELIQUIS [Concomitant]
     Active Substance: APIXABAN
  4. VERZENIO [Concomitant]
     Active Substance: ABEMACICLIB

REACTIONS (2)
  - Therapeutic procedure [None]
  - Therapy interrupted [None]
